FAERS Safety Report 4514371-9 (Version None)
Quarter: 2004Q4

REPORT INFORMATION
  Report Type: 
  Country: None (occurrence: None)
  Receive Date: 20041130
  Receipt Date: 20041122
  Transmission Date: 20050328
  Serious: Yes (Death, Life-Threatening, Disabling)
  Sender: FDA-Public Use
  Company Number: US-MERCK-0411USA03511

PATIENT
  Age: 62 Year
  Sex: Male

DRUGS (2)
  1. VIOXX [Suspect]
     Indication: OSTEOARTHRITIS
     Route: 048
  2. ZOLOFT [Concomitant]
     Route: 065

REACTIONS (2)
  - HYPERTENSION [None]
  - MYOCARDIAL INFARCTION [None]
